APPROVED DRUG PRODUCT: ANDROGEL
Active Ingredient: TESTOSTERONE
Strength: 12.5MG/1.25GM ACTUATION **Federal Register determination that product was not discontinued or withdrawn for safety or effectiveness reasons**
Dosage Form/Route: GEL, METERED;TRANSDERMAL
Application: N021015 | Product #003 | TE Code: AB1
Applicant: BESINS HEALTHCARE IRELAND LTD
Approved: Sep 26, 2003 | RLD: Yes | RS: No | Type: RX